FAERS Safety Report 9606585 (Version 2)
Quarter: 2013Q4

REPORT INFORMATION
  Report Type: Spontaneous
  Country: US (occurrence: US)
  Receive Date: 20131008
  Receipt Date: 20131008
  Transmission Date: 20140711
  Serious: Yes (Hospitalization)
  Sender: FDA-Public Use
  Company Number: US-AMGEN-USASP2013057085

PATIENT
  Age: 62 Year
  Sex: Female
  Weight: 45.81 kg

DRUGS (2)
  1. PROLIA [Suspect]
     Indication: OSTEOPOROSIS POSTMENOPAUSAL
     Dosage: 60 MG, UNK
     Route: 030
     Dates: start: 20120720
  2. LEVOXYL [Concomitant]
     Indication: THYROID DISORDER
     Dosage: 50 MUG, UNK
     Route: 048

REACTIONS (5)
  - Urticaria [Not Recovered/Not Resolved]
  - Weight decreased [Unknown]
  - Cheilitis [Unknown]
  - Rash [Not Recovered/Not Resolved]
  - Drug hypersensitivity [Unknown]
